FAERS Safety Report 9885926 (Version 2)
Quarter: 2014Q1

REPORT INFORMATION
  Report Type: Spontaneous
  Country: US (occurrence: US)
  Receive Date: 20140210
  Receipt Date: 20140224
  Transmission Date: 20141002
  Serious: Yes (Hospitalization)
  Sender: FDA-Public Use
  Company Number: US-GLAXOSMITHKLINE-A1059042A

PATIENT
  Age: 86 Year
  Sex: Female

DRUGS (5)
  1. ADVAIR HFA [Suspect]
     Indication: DYSPNOEA
     Dosage: 1PUFF PER DAY
     Route: 055
     Dates: start: 2004
  2. VENTOLIN HFA [Suspect]
     Indication: PRODUCT USED FOR UNKNOWN INDICATION
  3. LEVOTHYROXINE [Concomitant]
  4. SIMVASTATIN [Concomitant]
  5. AGGRENOX [Concomitant]

REACTIONS (10)
  - Pneumonia [Unknown]
  - Pyrexia [Unknown]
  - Depressed mood [Unknown]
  - Malaise [Unknown]
  - Lethargy [Unknown]
  - Gallbladder disorder [Unknown]
  - Cystitis [Unknown]
  - Mental disorder [Unknown]
  - Treatment noncompliance [Unknown]
  - Product quality issue [Unknown]
